FAERS Safety Report 21671125 (Version 3)
Quarter: 2022Q4

REPORT INFORMATION
  Report Type: Spontaneous
  Country: US (occurrence: US)
  Receive Date: 20221202
  Receipt Date: 20221219
  Transmission Date: 20230113
  Serious: No
  Sender: FDA-Public Use
  Company Number: US-GBT-015936

PATIENT
  Sex: Male

DRUGS (1)
  1. OXBRYTA [Suspect]
     Active Substance: VOXELOTOR
     Indication: Sickle cell disease
     Route: 048
     Dates: start: 202207, end: 20220901

REACTIONS (6)
  - Sickle cell anaemia with crisis [Recovering/Resolving]
  - Constipation [Recovering/Resolving]
  - Abdominal discomfort [Recovering/Resolving]
  - Product dose omission issue [Unknown]
  - Sickle cell anaemia with crisis [Recovering/Resolving]
  - Therapy cessation [Unknown]

NARRATIVE: CASE EVENT DATE: 20220101
